FAERS Safety Report 11104415 (Version 6)
Quarter: 2016Q2

REPORT INFORMATION
  Report Type: Spontaneous
  Country: US (occurrence: US)
  Receive Date: 20150511
  Receipt Date: 20160513
  Transmission Date: 20160815
  Serious: Yes (Other)
  Sender: FDA-Public Use
  Company Number: US-PFIZER INC-2015160053

PATIENT
  Age: 66 Year
  Sex: Male
  Weight: 66 kg

DRUGS (1)
  1. ZYVOX [Suspect]
     Active Substance: LINEZOLID
     Indication: INFECTION
     Dosage: 600 MG, 2X/DAY
     Route: 048
     Dates: start: 20150428, end: 20150428

REACTIONS (8)
  - Drug intolerance [Unknown]
  - Drug hypersensitivity [Unknown]
  - Dizziness [Unknown]
  - Fall [Unknown]
  - Feeling abnormal [Unknown]
  - Nephrolithiasis [Unknown]
  - Pollakiuria [Unknown]
  - Loss of consciousness [Recovered/Resolved]

NARRATIVE: CASE EVENT DATE: 201504
